FAERS Safety Report 5936276-9 (Version None)
Quarter: 2008Q4

REPORT INFORMATION
  Report Type: 
  Country: None (occurrence: None)
  Receive Date: 20081030
  Receipt Date: 20081015
  Transmission Date: 20090506
  Serious: Yes (Hospitalization)
  Sender: FDA-Public Use
  Company Number: FR-GENENTECH-270483

PATIENT
  Age: 46 Year

DRUGS (9)
  1. MABTHERA [Suspect]
     Indication: HEART TRANSPLANT REJECTION
     Dosage: 375 MG/M2, 4/MONTH
     Route: 065
  2. MYCOPHENOLATE MOFETIL [Suspect]
     Indication: HEART TRANSPLANT REJECTION
     Dosage: UNK
     Route: 065
  3. PREDNISOLONE [Suspect]
     Indication: HEART TRANSPLANT REJECTION
     Dosage: UNK
     Route: 065
  4. CYCLOSPORINE [Suspect]
     Indication: HEART TRANSPLANT REJECTION
     Dosage: UNK
     Route: 065
  5. HYDROXYZINE [Concomitant]
     Indication: PREMEDICATION
     Dosage: 25 MG, UNK
  6. ACETAMINOPHEN [Concomitant]
     Indication: PREMEDICATION
     Dosage: 1 G, UNK
  7. METHYLPREDNISOLONE 16MG TAB [Concomitant]
     Indication: PREMEDICATION
     Dosage: 20 MG, UNK
  8. HYDROCORTISONE [Concomitant]
     Indication: PREMEDICATION
     Dosage: 100 MG, UNK
  9. PLASMA PHERESIS [Concomitant]
     Indication: HEART TRANSPLANT REJECTION
     Dosage: UNK

REACTIONS (3)
  - ATRIOVENTRICULAR BLOCK SECOND DEGREE [None]
  - PULMONARY HYPERTENSION [None]
  - TRANSPLANT REJECTION [None]
